FAERS Safety Report 7995789-9 (Version None)
Quarter: 2011Q4

REPORT INFORMATION
  Report Type: 
  Country: None (occurrence: None)
  Receive Date: 20111216
  Receipt Date: 20111209
  Transmission Date: 20120403
  Serious: No
  Sender: FDA-Public Use
  Company Number: 2011SP057705

PATIENT
  Age: 59 Year
  Sex: Female

DRUGS (4)
  1. SAPHRIS [Suspect]
     Indication: MENTAL DISORDER
     Dosage: 5 MG, BID, SL
     Route: 060
     Dates: start: 20111101, end: 20111208
  2. HYDROCHLOROTHIAZIDE [Concomitant]
  3. SYNTHROID [Concomitant]
  4. PROZAC [Concomitant]

REACTIONS (5)
  - OFF LABEL USE [None]
  - JOINT SWELLING [None]
  - DYSGEUSIA [None]
  - OEDEMA PERIPHERAL [None]
  - DYSPNOEA [None]
